FAERS Safety Report 7604138-7 (Version None)
Quarter: 2011Q2

REPORT INFORMATION
  Report Type: 
  Country: None (occurrence: None)
  Receive Date: 20110630
  Receipt Date: 20110617
  Transmission Date: 20111010
  Serious: Yes (Other)
  Sender: FDA-Public Use
  Company Number: DSJ-2011-10476

PATIENT
  Age: 74 Year
  Sex: Female
  Weight: 44 kg

DRUGS (7)
  1. EPINASTINE HYDROCHLORIDE (EPINASTINE HYDROCHLORIDE)(EPINASTINE HYDROCH [Concomitant]
  2. CEFDINIR [Concomitant]
  3. ZOLPIDEM TARTRATE [Concomitant]
  4. MOSAPRIDE CITRATE HYDRATE (MOSAPRIDE CITRATE)(MOSAPRIDE CITRATE) [Concomitant]
  5. DILTIAZEM HYDROCHLORIDE (DILTIAZEM HYDROCHLORIDE)(DILTIAZEM HYDROCHLOR [Concomitant]
  6. OLMESARTAN MEDOXOMIL [Suspect]
     Indication: PRODUCT USED FOR UNKNOWN INDICATION
     Dosage: ,PER ORAL
     Route: 048
     Dates: start: 20090820
  7. SALMETEROL XINAFOATE FLUTICASONE PROPIONATE(FLUTICASONE PROPIONATE, SA [Concomitant]

REACTIONS (6)
  - ASPARTATE AMINOTRANSFERASE INCREASED [None]
  - BLOOD LACTATE DEHYDROGENASE INCREASED [None]
  - ALANINE AMINOTRANSFERASE INCREASED [None]
  - BLOOD PRESSURE INCREASED [None]
  - GAMMA-GLUTAMYLTRANSFERASE INCREASED [None]
  - LIVER DISORDER [None]
